FAERS Safety Report 4550628-3 (Version None)
Quarter: 2004Q4

REPORT INFORMATION
  Report Type: 
  Country: None (occurrence: None)
  Receive Date: 20041227
  Receipt Date: 20040909
  Transmission Date: 20050328
  Serious: No
  Sender: FDA-Public Use
  Company Number: 04P-163-0272845-00

PATIENT
  Age: 54 Year
  Sex: Female
  Weight: 59.8748 kg

DRUGS (7)
  1. HUMIRA [Suspect]
     Indication: PSORIATIC ARTHROPATHY
     Dosage: 40 MG, 1 IN 2 WK, SUBCUTANEOUS
     Route: 058
     Dates: start: 20040801
  2. MELOXICAM [Concomitant]
  3. LEFLUNOMIDE [Concomitant]
  4. CITALOPRAM HYDROBROMIDE [Concomitant]
  5. PREDNISONE [Concomitant]
  6. OXYCONTIN [Concomitant]
  7. FAMOTIDINE [Concomitant]

REACTIONS (3)
  - NAUSEA [None]
  - NECK PAIN [None]
  - SINUS DISORDER [None]
